FAERS Safety Report 20740378 (Version 2)
Quarter: 2022Q2

REPORT INFORMATION
  Report Type: Spontaneous
  Country: US (occurrence: US)
  Receive Date: 20220422
  Receipt Date: 20220510
  Transmission Date: 20220721
  Serious: Yes (Hospitalization)
  Sender: FDA-Public Use
  Company Number: US-OAKRUM PHARMA-2022OAK00002

PATIENT
  Age: 46 Year
  Sex: Female
  Weight: 93.424 kg

DRUGS (19)
  1. PYRIMETHAMINE [Suspect]
     Active Substance: PYRIMETHAMINE
     Indication: Cerebral toxoplasmosis
     Dosage: 2 TABLETS, 1X/DAY
     Route: 048
     Dates: start: 20210818
  2. PYRIMETHAMINE [Suspect]
     Active Substance: PYRIMETHAMINE
     Indication: HIV infection
  3. XANAX [Concomitant]
     Active Substance: ALPRAZOLAM
  4. CLINDAMYCIN [Concomitant]
     Active Substance: CLINDAMYCIN
     Dosage: 600 MG, 3X/DAY (EVERY 8 HOURS)
  5. FLOVENT [Concomitant]
     Active Substance: FLUTICASONE PROPIONATE
     Dosage: 1 PUFF, 2X/DAY
  6. ATORVASTATIN [Concomitant]
     Active Substance: ATORVASTATIN
     Dosage: 40 MG, 1X/DAY
  7. CLOPIDOGREL [Concomitant]
     Active Substance: CLOPIDOGREL BISULFATE
     Dosage: 75 MG, 1X/DAY
  8. BIKTARVY [Concomitant]
     Active Substance: BICTEGRAVIR SODIUM\EMTRICITABINE\TENOFOVIR ALAFENAMIDE FUMARATE
     Dosage: 1 TABLETS, 1X/DAY
  9. KEPPRA [Concomitant]
     Active Substance: LEVETIRACETAM
     Dosage: 750 MG, 2X/DAY (EVERY 12 HOURS)
  10. LEUCOVORIN [Concomitant]
     Active Substance: LEUCOVORIN
     Dosage: 15 MG, 1X/DAY
  11. ATOVAQUONE [Concomitant]
     Active Substance: ATOVAQUONE
     Dosage: 5 ML, 2X/DAY WITH FOOD
  12. FOLIC ACID [Concomitant]
     Active Substance: FOLIC ACID
  13. AMLODIPINE [Concomitant]
     Active Substance: AMLODIPINE BESYLATE
  14. HYDROCHLOROTHIAZIDE [Concomitant]
     Active Substance: HYDROCHLOROTHIAZIDE
  15. TIZANIDINE [Concomitant]
     Active Substance: TIZANIDINE
  16. FAMOTIDINE [Concomitant]
     Active Substance: FAMOTIDINE
  17. VITAMIN D [Concomitant]
     Active Substance: VITAMIN D NOS
  18. ZYRTEC [Concomitant]
     Active Substance: CETIRIZINE HYDROCHLORIDE
  19. ALBUTEROL [Concomitant]
     Active Substance: ALBUTEROL

REACTIONS (3)
  - Bronchitis [Not Recovered/Not Resolved]
  - COVID-19 [Not Recovered/Not Resolved]
  - Off label use [Not Recovered/Not Resolved]

NARRATIVE: CASE EVENT DATE: 20210818
